FAERS Safety Report 19680151 (Version 1)
Quarter: 2021Q3

REPORT INFORMATION
  Report Type: Spontaneous
  Country: US (occurrence: US)
  Receive Date: 20210810
  Receipt Date: 20210810
  Transmission Date: 20211014
  Serious: Yes (Hospitalization, Other)
  Sender: FDA-Public Use
  Company Number: US-PFIZER INC-202100964312

PATIENT
  Age: 63 Year
  Sex: Male
  Weight: 95.24 kg

DRUGS (1)
  1. INLYTA [Suspect]
     Active Substance: AXITINIB
     Indication: RENAL CELL CARCINOMA
     Dosage: 3 MG, 2X/DAY (3 TAB TWICE A DAY)
     Route: 048
     Dates: start: 202102

REACTIONS (10)
  - Diverticulitis [Unknown]
  - Dyspnoea [Unknown]
  - Decreased appetite [Unknown]
  - Constipation [Unknown]
  - Dysphonia [Unknown]
  - Hypertension [Unknown]
  - Diarrhoea [Unknown]
  - Weight decreased [Unknown]
  - Fatigue [Unknown]
  - Palmar-plantar erythrodysaesthesia syndrome [Unknown]

NARRATIVE: CASE EVENT DATE: 2021
